FAERS Safety Report 16093757 (Version 1)
Quarter: 2019Q1

REPORT INFORMATION
  Report Type: Report from Study
  Country: IT (occurrence: IT)
  Receive Date: 20190320
  Receipt Date: 20190320
  Transmission Date: 20190418
  Serious: Yes (Hospitalization)
  Sender: FDA-Public Use
  Company Number: IT-ACCORD-114074

PATIENT
  Age: 47 Year
  Sex: Female

DRUGS (5)
  1. CARDICOR [Concomitant]
     Active Substance: BISOPROLOL
     Dosage: STRENGTH: 1.25 MG
  2. TAVOR [Concomitant]
     Dosage: STRENGTH: 2.5 MG
  3. LITHIUM. [Concomitant]
     Active Substance: LITHIUM
  4. NOZINAN [Concomitant]
     Active Substance: LEVOMEPROMAZINE
     Dosage: STRENGTH: 100 MG
  5. QUETIAPINE. [Suspect]
     Active Substance: QUETIAPINE
     Route: 048
     Dates: start: 20180915, end: 20180915

REACTIONS (3)
  - Substance abuse [Unknown]
  - Sopor [Recovering/Resolving]
  - Intentional self-injury [Unknown]

NARRATIVE: CASE EVENT DATE: 20180915
